FAERS Safety Report 6298061-0 (Version None)
Quarter: 2009Q3

REPORT INFORMATION
  Report Type: 
  Country: None (occurrence: None)
  Receive Date: 20090804
  Receipt Date: 20090804
  Transmission Date: 20100115
  Serious: No
  Sender: FDA-Public Use
  Company Number: None

PATIENT
  Age: 53 Year
  Sex: Male
  Weight: 73.4827 kg

DRUGS (1)
  1. ZICAM NASAL GEL ZICAM LLC/MATRIXX INITIATIVES INC [Suspect]
     Indication: NASAL CONGESTION
     Dosage: ONE -1- SPRET EVERY 4 HOURS NASAL
     Route: 045
     Dates: start: 20090612, end: 20090612

REACTIONS (5)
  - AGEUSIA [None]
  - ANOSMIA [None]
  - LACRIMATION INCREASED [None]
  - NASAL DISCOMFORT [None]
  - RHINORRHOEA [None]
